FAERS Safety Report 9340325 (Version 1)
Quarter: 2013Q2

REPORT INFORMATION
  Report Type: Spontaneous
  Country: US (occurrence: US)
  Receive Date: 20130610
  Receipt Date: 20130610
  Transmission Date: 20140414
  Serious: No
  Sender: FDA-Public Use
  Company Number: US-PFIZER INC-2013170189

PATIENT
  Age: 31 Year
  Sex: Female
  Weight: 81.63 kg

DRUGS (9)
  1. SOMAVERT [Suspect]
     Indication: ACROMEGALY
     Dosage: 20 MG, VIAL 1X/DAY
     Route: 058
  2. TOPAMAX [Concomitant]
     Dosage: 25 MG, UNK
  3. SIMVASTATIN [Concomitant]
     Dosage: 5 MG, UNK
  4. URSODIOL [Concomitant]
     Dosage: 250 MG, UNK
  5. SYNTHROID [Concomitant]
     Dosage: 100 UG, UNK
  6. TEGRETOL XR [Concomitant]
     Dosage: 100 MG, UNK
  7. NORTREL [Concomitant]
     Dosage: 1/35, UNK
  8. SANDOSTATIN KIT LAR [Concomitant]
     Dosage: 30 MG, UNK
  9. IRON [Concomitant]
     Dosage: 18 MG, UNK

REACTIONS (1)
  - Injection site induration [Unknown]
